FAERS Safety Report 7086049-1 (Version None)
Quarter: 2010Q4

REPORT INFORMATION
  Report Type: 
  Country: None (occurrence: None)
  Receive Date: 20101105
  Receipt Date: 20101029
  Transmission Date: 20110411
  Serious: Yes (Other)
  Sender: FDA-Public Use
  Company Number: A0889735A

PATIENT
  Age: 73 Year
  Sex: Male

DRUGS (11)
  1. COREG [Suspect]
     Dosage: 6.25MG TWICE PER DAY
     Route: 048
  2. LANOXIN [Suspect]
     Indication: ATRIAL FIBRILLATION
     Dosage: .25MG PER DAY
     Route: 048
     Dates: start: 20040101
  3. COUMADIN [Concomitant]
  4. LASIX [Concomitant]
  5. LIPITOR [Concomitant]
  6. SOTALOL [Concomitant]
  7. PRANDIN [Concomitant]
  8. GLUCOPHAGE [Concomitant]
  9. GLIMEPIRIDE [Concomitant]
  10. LUPRON [Concomitant]
     Indication: PROSTATE CANCER
  11. QUINAPRIL [Concomitant]

REACTIONS (2)
  - CARDIOVERSION [None]
  - CEREBROVASCULAR ACCIDENT [None]
